FAERS Safety Report 23247733 (Version 5)
Quarter: 2024Q1

REPORT INFORMATION
  Report Type: Spontaneous
  Country: US (occurrence: US)
  Receive Date: 20231130
  Receipt Date: 20240131
  Transmission Date: 20240409
  Serious: No
  Sender: FDA-Public Use
  Company Number: US-PFIZER INC-PV202300163831

PATIENT
  Age: 83 Year
  Sex: Male

DRUGS (3)
  1. TALZENNA [Suspect]
     Active Substance: TALAZOPARIB TOSYLATE
     Indication: Prostate cancer
     Dosage: (TAKE 4 CAPSULES (160 MG) DAILY BY MOUTH)
     Route: 048
  2. TALZENNA [Suspect]
     Active Substance: TALAZOPARIB TOSYLATE
     Dosage: 0.25 MG
  3. TALZENNA [Suspect]
     Active Substance: TALAZOPARIB TOSYLATE
     Dosage: TAKE 4 CAPSULE (160 MG) DAILY BY MOUTH.
     Route: 048

REACTIONS (2)
  - Illness [Unknown]
  - Product prescribing error [Unknown]
